FAERS Safety Report 5953685-2 (Version None)
Quarter: 2008Q4

REPORT INFORMATION
  Report Type: 
  Country: None (occurrence: None)
  Receive Date: 20081114
  Receipt Date: 20081105
  Transmission Date: 20090506
  Serious: Yes (Hospitalization, Other)
  Sender: FDA-Public Use
  Company Number: JP-BAXTER-2008BH011969

PATIENT
  Age: 68 Year
  Sex: Male

DRUGS (12)
  1. ENDOXAN BAXTER [Suspect]
     Indication: PERIPHERAL T-CELL LYMPHOMA UNSPECIFIED
     Dosage: DOSE UNIT:UNKNOWN
     Route: 041
     Dates: start: 20060101
  2. ENDOXAN BAXTER [Suspect]
     Dosage: DOSE UNIT:UNKNOWN
     Route: 048
     Dates: start: 20070301
  3. ETOPOSIDE [Suspect]
     Indication: PERIPHERAL T-CELL LYMPHOMA UNSPECIFIED
     Dosage: DOSE UNIT:UNKNOWN
     Route: 041
     Dates: start: 20030501
  4. BLEOMYCIN SULFATE [Suspect]
     Indication: PERIPHERAL T-CELL LYMPHOMA UNSPECIFIED
     Dosage: DOSE UNIT:UNKNOWN
     Route: 041
     Dates: start: 20060101
  5. DOXORUBICIN HCL [Suspect]
     Indication: PERIPHERAL T-CELL LYMPHOMA UNSPECIFIED
     Dosage: DOSE UNIT:UNKNOWN
     Route: 041
     Dates: start: 20060101
  6. ONCOVIN [Suspect]
     Indication: PERIPHERAL T-CELL LYMPHOMA UNSPECIFIED
     Dosage: DOSE UNIT:UNKNOWN
     Route: 041
     Dates: start: 20060101
  7. PIRARUBICIN [Suspect]
     Indication: PERIPHERAL T-CELL LYMPHOMA UNSPECIFIED
     Dosage: DOSE UNIT:UNKNOWN
     Route: 041
     Dates: start: 20060101
  8. IRINOTECAN HYDROCHLORIDE [Suspect]
     Indication: PERIPHERAL T-CELL LYMPHOMA UNSPECIFIED
     Dosage: DOSE UNIT:UNKNOWN
     Route: 041
     Dates: start: 20060901
  9. METHOTREXATE [Suspect]
     Indication: PERIPHERAL T-CELL LYMPHOMA UNSPECIFIED
     Dosage: DOSE UNIT:UNKNOWN
     Route: 041
     Dates: start: 20060101
  10. CYTARABINE [Suspect]
     Indication: PERIPHERAL T-CELL LYMPHOMA UNSPECIFIED
     Dosage: DOSE UNIT:UNKNOWN
     Route: 041
     Dates: start: 20060101
  11. PREDNISOLONE [Concomitant]
     Indication: DRUG USE FOR UNKNOWN INDICATION
     Dosage: DOSE UNIT:UNKNOWN
     Route: 048
     Dates: start: 20060101
  12. RADIATION THERAPY [Concomitant]
     Indication: DRUG USE FOR UNKNOWN INDICATION
     Dosage: DOSE UNIT:UNKNOWN
     Route: 065
     Dates: start: 20030101

REACTIONS (1)
  - BURKITT'S LYMPHOMA [None]
